FAERS Safety Report 8874678 (Version 1)
Quarter: 2012Q4

REPORT INFORMATION
  Report Type: 
  Country: US (occurrence: US)
  Receive Date: 20121030
  Receipt Date: 20121030
  Transmission Date: 20130627
  Serious: No
  Sender: FDA-Public Use
  Company Number: US-AMGEN-USASP2012039868

PATIENT
  Age: 59 Year
  Sex: Male
  Weight: 96.6 kg

DRUGS (2)
  1. ENBREL [Suspect]
     Indication: RHEUMATOID ARTHRITIS
     Dosage: 50 mg, qwk
     Route: 058
     Dates: start: 201111
  2. METHOTREXATE [Concomitant]
     Dosage: UNK

REACTIONS (4)
  - Macule [Not Recovered/Not Resolved]
  - Flushing [Unknown]
  - Dry skin [Not Recovered/Not Resolved]
  - Photosensitivity reaction [Not Recovered/Not Resolved]
